FAERS Safety Report 15764458 (Version 3)
Quarter: 2019Q2

REPORT INFORMATION
  Report Type: Spontaneous
  Country: JP (occurrence: JP)
  Receive Date: 20181227
  Receipt Date: 20190403
  Transmission Date: 20190711
  Serious: Yes (Hospitalization, Other)
  Sender: FDA-Public Use
  Company Number: JP-TEVA-2018-JP-991023

PATIENT
  Age: 85 Year
  Sex: Male
  Weight: 67.5 kg

DRUGS (6)
  1. TRISENOX [Suspect]
     Active Substance: ARSENIC TRIOXIDE
     Dosage: 10 MILLIGRAM DAILY;
     Route: 041
     Dates: start: 20181112, end: 20181203
  2. ELIQUIS [Concomitant]
     Active Substance: APIXABAN
     Indication: ATRIAL FIBRILLATION
     Route: 065
     Dates: start: 2016
  3. FEBURIC [Concomitant]
     Active Substance: FEBUXOSTAT
     Dates: start: 20180918
  4. TRISENOX [Suspect]
     Active Substance: ARSENIC TRIOXIDE
     Dosage: 10 MILLIGRAM DAILY;
     Route: 041
     Dates: start: 20181106, end: 20181108
  5. TRISENOX [Suspect]
     Active Substance: ARSENIC TRIOXIDE
     Indication: ACUTE PROMYELOCYTIC LEUKAEMIA
     Dosage: 10 MILLIGRAM DAILY;
     Route: 041
     Dates: start: 20180919, end: 20181025
  6. AMLODIPINE [Concomitant]
     Active Substance: AMLODIPINE BESYLATE
     Indication: HYPERTENSION
     Dates: end: 20180929

REACTIONS (1)
  - Cardiac failure congestive [Recovered/Resolved]

NARRATIVE: CASE EVENT DATE: 20181017
